FAERS Safety Report 15979293 (Version 1)
Quarter: 2019Q1

REPORT INFORMATION
  Report Type: Spontaneous
  Country: US (occurrence: US)
  Receive Date: 20190216
  Receipt Date: 20190216
  Transmission Date: 20190418
  Serious: Yes (Life-Threatening, Hospitalization)
  Sender: FDA-Public Use
  Company Number: None

PATIENT
  Age: 34 Year
  Sex: Male
  Weight: 56.25 kg

DRUGS (2)
  1. TIVICAY [Suspect]
     Active Substance: DOLUTEGRAVIR SODIUM
     Indication: PROPHYLAXIS AGAINST HIV INFECTION
     Dosage: ?          QUANTITY:1 TABLET(S);?
     Route: 048
     Dates: start: 20190215, end: 20190215
  2. TRUVADA [Suspect]
     Active Substance: EMTRICITABINE\TENOFOVIR DISOPROXIL FUMARATE
     Indication: PROPHYLAXIS AGAINST HIV INFECTION
     Dosage: ?          QUANTITY:1 TABLET(S);?
     Route: 048
     Dates: start: 20190215, end: 20190215

REACTIONS (9)
  - Immune system disorder [None]
  - Fall [None]
  - Chills [None]
  - Ligament injury [None]
  - Skin discolouration [None]
  - Loss of consciousness [None]
  - Gait disturbance [None]
  - Dizziness [None]
  - Body temperature increased [None]

NARRATIVE: CASE EVENT DATE: 20190216
